FAERS Safety Report 4877733-6 (Version None)
Quarter: 2005Q4

REPORT INFORMATION
  Report Type: 
  Country: None (occurrence: None)
  Receive Date: 20051206
  Receipt Date: 20050921
  Transmission Date: 20060501
  Serious: No
  Sender: FDA-Public Use
  Company Number: USA0509108793

PATIENT
  Age: 28 Year
  Sex: Female

DRUGS (3)
  1. CYMBALTA [Suspect]
     Indication: DEPRESSION
     Dosage: 120 MG
     Dates: start: 20050728
  2. CYMBALTA [Suspect]
     Indication: DRUG RESISTANCE
     Dosage: 120 MG
     Dates: start: 20050728
  3. ADDERALL XR 10 [Concomitant]

REACTIONS (4)
  - ANOREXIA [None]
  - DEPRESSION [None]
  - SUICIDAL IDEATION [None]
  - WEIGHT GAIN POOR [None]
